FAERS Safety Report 19665754 (Version 3)
Quarter: 2024Q1

REPORT INFORMATION
  Report Type: Spontaneous
  Country: US (occurrence: US)
  Receive Date: 20210806
  Receipt Date: 20240101
  Transmission Date: 20240409
  Serious: Yes (Other)
  Sender: FDA-Public Use
  Company Number: US-ACCORD-220448

PATIENT
  Age: 56 Year
  Sex: Female
  Weight: 65.6 kg

DRUGS (4)
  1. CARBOPLATIN [Suspect]
     Active Substance: CARBOPLATIN
     Indication: Breast cancer
     Dosage: ONCE
     Route: 042
     Dates: start: 20190619, end: 20191001
  2. DOCETAXEL [Suspect]
     Active Substance: DOCETAXEL\DOCETAXEL ANHYDROUS
     Indication: Breast cancer
     Dosage: EVERY 3 WEEKS; C1-C4:124 MG; C5-C6: 100MG
     Route: 042
     Dates: start: 20190619, end: 20191001
  3. HERCEPTIN [Suspect]
     Active Substance: TRASTUZUMAB
     Indication: Breast cancer
     Route: 042
     Dates: start: 20190619, end: 20191001
  4. PERJETA [Suspect]
     Active Substance: PERTUZUMAB
     Indication: Breast cancer
     Dosage: ONCE
     Route: 042
     Dates: start: 20190619, end: 20191001

REACTIONS (6)
  - Dacryostenosis acquired [Not Recovered/Not Resolved]
  - Neuropathy peripheral [Unknown]
  - Vulvovaginal dryness [Unknown]
  - Dry eye [Unknown]
  - Cataract [Unknown]
  - Off label use [Unknown]

NARRATIVE: CASE EVENT DATE: 20191127
